FAERS Safety Report 9387463 (Version 1)
Quarter: 2013Q2

REPORT INFORMATION
  Report Type: Spontaneous
  Country: JP (occurrence: None)
  Receive Date: 20130625
  Receipt Date: 20130625
  Transmission Date: 20140414
  Serious: Yes (Hospitalization)
  Sender: FDA-Public Use
  Company Number: 0239544

PATIENT
  Age: 46 Year
  Sex: Male

DRUGS (4)
  1. TACHOSIL [Suspect]
     Indication: PROPHYLAXIS
     Dosage: 1 SHEET OF REGULAR SIZE
     Dates: start: 20130304
  2. MYSLEE (ZOLPIDEM TARTRATE) [Concomitant]
  3. TSUMURA DAIKENCHUTO (TSUMURA DAISAIKOZOU) (GRANULES) [Concomitant]
  4. CEFELOX (CELECOXIS) [Concomitant]

REACTIONS (3)
  - Suture related complication [None]
  - Wound infection [None]
  - Urticaria [None]
